FAERS Safety Report 7294687-6 (Version None)
Quarter: 2011Q1

REPORT INFORMATION
  Report Type: 
  Country: None (occurrence: None)
  Receive Date: 20110216
  Receipt Date: 20110210
  Transmission Date: 20110831
  Serious: Yes (Other)
  Sender: FDA-Public Use
  Company Number: ES-BAYER-2011-013548

PATIENT
  Age: 52 Year
  Sex: Female
  Weight: 47 kg

DRUGS (1)
  1. ULTRAVIST 150 [Suspect]
     Indication: COMPUTERISED TOMOGRAM
     Dosage: 120 ML, UNK
     Route: 042
     Dates: start: 20110209, end: 20110209

REACTIONS (5)
  - LIP OEDEMA [None]
  - EYELID OEDEMA [None]
  - DIARRHOEA [None]
  - LARYNGEAL OEDEMA [None]
  - INFLAMMATION [None]
